FAERS Safety Report 18434124 (Version 4)
Quarter: 2021Q2

REPORT INFORMATION
  Report Type: Report from Study
  Country: PE (occurrence: PE)
  Receive Date: 20201027
  Receipt Date: 20210426
  Transmission Date: 20210717
  Serious: Yes (Hospitalization, Other)
  Sender: FDA-Public Use
  Company Number: PE-TAKEDA-2020TUS043848

PATIENT
  Age: 43 Year
  Sex: Male

DRUGS (2)
  1. VEDOLIZUMAB [Suspect]
     Active Substance: VEDOLIZUMAB
     Indication: CROHN^S DISEASE
     Dosage: 300 MILLIGRAM
     Route: 042
     Dates: start: 20180206
  2. VEDOLIZUMAB [Suspect]
     Active Substance: VEDOLIZUMAB
     Dosage: 300 MILLIGRAM, Q4WEEKS
     Route: 042

REACTIONS (9)
  - Off label use [Unknown]
  - Small intestine ulcer [Unknown]
  - Crohn^s disease [Unknown]
  - Abdominal distension [Recovered/Resolved]
  - Gastrointestinal haemorrhage [Recovering/Resolving]
  - Small intestinal stenosis [Unknown]
  - Gastric ulcer [Unknown]
  - Abdominal pain [Recovered/Resolved]
  - Haemoglobin decreased [Unknown]

NARRATIVE: CASE EVENT DATE: 20201013
